FAERS Safety Report 6841134-1 (Version None)
Quarter: 2010Q3

REPORT INFORMATION
  Report Type: 
  Country: None (occurrence: None)
  Receive Date: 20100714
  Receipt Date: 20070626
  Transmission Date: 20110219
  Serious: No
  Sender: FDA-Public Use
  Company Number: US-PFIZER INC-2007053808

PATIENT
  Sex: Female
  Weight: 76.7 kg

DRUGS (11)
  1. CHANTIX [Suspect]
     Indication: SMOKING CESSATION THERAPY
     Dates: start: 20070601, end: 20070619
  2. NEURONTIN [Concomitant]
  3. ALLEGRA [Concomitant]
  4. PSEUDOEPHEDRINE [Concomitant]
  5. GLYBURIDE [Concomitant]
  6. LISINOPRIL [Concomitant]
  7. NIASPAN [Concomitant]
  8. CELEXA [Concomitant]
  9. HYDROXYZINE [Concomitant]
  10. DILANTIN [Concomitant]
  11. LIPITOR [Concomitant]

REACTIONS (4)
  - ASTHENIA [None]
  - DIARRHOEA [None]
  - NAUSEA [None]
  - VOMITING [None]
